FAERS Safety Report 7602564-3 (Version None)
Quarter: 2011Q2

REPORT INFORMATION
  Report Type: 
  Country: None (occurrence: None)
  Receive Date: 20110630
  Receipt Date: 20101028
  Transmission Date: 20111010
  Serious: Yes (Death, Hospitalization, Other)
  Sender: FDA-Public Use
  Company Number: 2010SP057492

PATIENT
  Age: 46 Year
  Sex: Male

DRUGS (16)
  1. GABAPENTIN [Concomitant]
  2. METHADONE HCL [Concomitant]
  3. OPRELVEKIN [Concomitant]
  4. PROCRIT [Suspect]
  5. ERYTHROPOETIN [Suspect]
     Indication: PRODUCT USED FOR UNKNOWN INDICATION
     Dosage: 60000 IU
     Dates: start: 20011201, end: 20011201
  6. ERYTHROPOETIN [Suspect]
     Indication: PRODUCT USED FOR UNKNOWN INDICATION
     Dosage: 60000 IU
     Dates: start: 20031219, end: 20031219
  7. ERYTHROPOETIN [Suspect]
     Indication: PRODUCT USED FOR UNKNOWN INDICATION
     Dosage: 60000 IU
     Dates: start: 20020201, end: 20020201
  8. COPEGUS [Suspect]
     Indication: HEPATITIS C
     Dates: start: 20031201
  9. INTRON A [Suspect]
     Indication: HEPATITIS C
     Dosage: ; SC
     Route: 058
     Dates: start: 20031201
  10. RIBAVIRIN [Suspect]
     Indication: HEPATITIS C
     Dosage: ; BID; PO
     Dates: start: 20011201, end: 20020701
  11. RIBAVIRIN [Suspect]
     Indication: HEPATITIS C
     Dosage: ; BID; PO
     Dates: start: 20031201
  12. PEGASYS [Suspect]
     Indication: HEPATITIS C
     Dates: start: 20031201
  13. FILGRASTIM [Suspect]
  14. PEGINTERFERON ALFA-2A [Suspect]
     Indication: HEPATITIS C
     Dates: start: 20031201
  15. INTERFERON ALFA-2B W/RIBAVIRIN [Suspect]
     Indication: HEPATITIS C
     Dates: end: 20030101
  16. BUPROPION HCL [Concomitant]

REACTIONS (18)
  - INTESTINAL ISCHAEMIA [None]
  - PERITONEAL ADHESIONS [None]
  - PNEUMONIA ASPIRATION [None]
  - COLLAPSE OF LUNG [None]
  - PLEURAL EFFUSION [None]
  - HAEMATOCHEZIA [None]
  - LARGE INTESTINE PERFORATION [None]
  - PAIN [None]
  - PERITONITIS [None]
  - ABDOMINAL DISTENSION [None]
  - DIARRHOEA [None]
  - OFF LABEL USE [None]
  - SKIN ULCER [None]
  - SKIN GRAFT FAILURE [None]
  - SCROTAL OEDEMA [None]
  - PNEUMONIA [None]
  - OVERDOSE [None]
  - INTESTINAL DILATATION [None]
